FAERS Safety Report 7222677-8 (Version None)
Quarter: 2011Q1

REPORT INFORMATION
  Report Type: 
  Country: None (occurrence: None)
  Receive Date: 20110106
  Receipt Date: 20110106
  Transmission Date: 20110831
  Serious: Yes (Other)
  Sender: FDA-Public Use
  Company Number: None

PATIENT
  Age: 58 Year
  Sex: Female
  Weight: 68.9467 kg

DRUGS (2)
  1. CELEBREX [Suspect]
     Indication: KNEE OPERATION
     Dosage: 200MG BID P.O
     Route: 048
     Dates: start: 20101123
  2. CELEBREX [Suspect]
     Indication: KNEE OPERATION
     Dosage: 200MG BID P.O
     Route: 048
     Dates: start: 20101116

REACTIONS (3)
  - RASH ERYTHEMATOUS [None]
  - SKIN WARM [None]
  - RASH PRURITIC [None]
